FAERS Safety Report 17284511 (Version 2)
Quarter: 2020Q1

REPORT INFORMATION
  Report Type: Report from Study
  Country: US (occurrence: US)
  Receive Date: 20200117
  Receipt Date: 20200227
  Transmission Date: 20200409
  Serious: Yes (Hospitalization)
  Sender: FDA-Public Use
  Company Number: US-AMGEN-USACT2015021242

PATIENT
  Age: 60 Year
  Sex: Male
  Weight: 100.8 kg

DRUGS (4)
  1. DEXAMETHASONE. [Suspect]
     Active Substance: DEXAMETHASONE
     Indication: PLASMA CELL MYELOMA
     Dosage: UNK UNK, PER CHEMO REGIM
     Route: 065
     Dates: start: 20140812
  2. CARFILZOMIB [Suspect]
     Active Substance: CARFILZOMIB
     Indication: PLASMA CELL MYELOMA
     Dosage: 44 MILLIGRAM, PER CHEMO REGIM
     Route: 042
     Dates: start: 20140812
  3. LENALIDOMIDE [Suspect]
     Active Substance: LENALIDOMIDE
     Indication: PLASMA CELL MYELOMA
     Dosage: UNK UNK, PER CHEMO REGIM
     Route: 065
     Dates: start: 20140812
  4. CARFILZOMIB [Suspect]
     Active Substance: CARFILZOMIB
     Dosage: 45 MILLIGRAM, PER CHEMO REGIM
     Route: 042
     Dates: start: 20150218

REACTIONS (2)
  - Upper respiratory tract infection [Recovered/Resolved]
  - Chronic obstructive pulmonary disease [Recovered/Resolved]

NARRATIVE: CASE EVENT DATE: 20150228
